FAERS Safety Report 11844628 (Version 2)
Quarter: 2015Q4

REPORT INFORMATION
  Report Type: Spontaneous
  Country: KR (occurrence: KR)
  Receive Date: 20151217
  Receipt Date: 20151217
  Transmission Date: 20160305
  Serious: Yes (Other)
  Sender: FDA-Public Use
  Company Number: KR-OMEROS CORPORATION-2015OME00011

PATIENT
  Age: 1 Month
  Sex: Male
  Weight: 1.7 kg

DRUGS (2)
  1. TROPICAMIDE 1% [Concomitant]
     Indication: MYDRIASIS
     Dosage: 1 DROP IN EACH EYE
     Route: 047
  2. PHENYLEPHRINE [Suspect]
     Active Substance: PHENYLEPHRINE\PHENYLEPHRINE HYDROCHLORIDE
     Indication: MYDRIASIS
     Dosage: 1 DROP IN EACH EYE, TWICE
     Route: 047

REACTIONS (2)
  - Neonatal hypoxia [Recovered/Resolved]
  - Bronchospasm [Recovered/Resolved]
